FAERS Safety Report 18632823 (Version 1)
Quarter: 2020Q4

REPORT INFORMATION
  Report Type: Spontaneous
  Country: AU (occurrence: AU)
  Receive Date: 20201218
  Receipt Date: 20201218
  Transmission Date: 20210114
  Serious: Yes (Other)
  Sender: FDA-Public Use
  Company Number: AU-009507513-2012AUS005332

PATIENT
  Age: 25 Year
  Sex: Male

DRUGS (3)
  1. PEMBROLIZUMAB. [Suspect]
     Active Substance: PEMBROLIZUMAB
     Indication: HODGKIN^S DISEASE RECURRENT
     Dosage: UNK, 2 CYCLES
     Dates: start: 2019
  2. PEMBROLIZUMAB. [Suspect]
     Active Substance: PEMBROLIZUMAB
     Indication: HODGKIN^S DISEASE REFRACTORY
  3. PEMBROLIZUMAB. [Suspect]
     Active Substance: PEMBROLIZUMAB
     Indication: HODGKIN^S DISEASE
     Dosage: UNK, 4 CYCLES
     Dates: start: 201811, end: 201902

REACTIONS (1)
  - Granulomatous lymphadenitis [Recovered/Resolved]

NARRATIVE: CASE EVENT DATE: 201902
